FAERS Safety Report 19929489 (Version 5)
Quarter: 2023Q4

REPORT INFORMATION
  Report Type: Spontaneous
  Country: US (occurrence: US)
  Receive Date: 20211007
  Receipt Date: 20231228
  Transmission Date: 20240110
  Serious: Yes (Other)
  Sender: FDA-Public Use
  Company Number: US-PFIZER INC-202101237519

PATIENT
  Sex: Female

DRUGS (1)
  1. PREMPRO [Suspect]
     Active Substance: ESTROGENS, CONJUGATED\MEDROXYPROGESTERONE ACETATE
     Dosage: UNK

REACTIONS (6)
  - Haemorrhage [Recovered/Resolved]
  - Therapeutic response unexpected [Unknown]
  - Mood swings [Unknown]
  - Headache [Unknown]
  - Product dispensing error [Unknown]
  - Product dose omission issue [Unknown]
